FAERS Safety Report 8614082 (Version 2)
Quarter: 2012Q4

REPORT INFORMATION
  Report Type: 
  Country: JP (occurrence: JP)
  Receive Date: 20120614
  Receipt Date: 20120913
  Transmission Date: 20130627
  Serious: Yes (Hospitalization)
  Sender: FDA-Public Use
  Company Number: JP-PFIZER INC-2012141364

PATIENT
  Age: 81 Year
  Sex: Male

DRUGS (7)
  1. ANCARON [Suspect]
     Indication: VENTRICULAR TACHYCARDIA
     Dosage: 100 milligram(s);Twice a day
     Route: 048
     Dates: start: 20080312, end: 20120516
  2. ARTIST [Concomitant]
     Dosage: UNK
     Dates: start: 200804
  3. AMLODIN [Concomitant]
     Dosage: UNK
     Dates: start: 200804
  4. DIOVANE [Concomitant]
     Dosage: UNK
     Dates: start: 200804
  5. GASTER [Concomitant]
     Dosage: UNK
     Dates: start: 200804
  6. FEBURIC [Concomitant]
     Dosage: UNK
  7. MEILAX [Concomitant]
     Dosage: UNK

REACTIONS (3)
  - Decreased appetite [Recovering/Resolving]
  - Hepatic function abnormal [Recovering/Resolving]
  - Gastritis [Unknown]
